FAERS Safety Report 13031869 (Version 8)
Quarter: 2017Q2

REPORT INFORMATION
  Report Type: Spontaneous
  Country: US (occurrence: US)
  Receive Date: 20161215
  Receipt Date: 20170602
  Transmission Date: 20170830
  Serious: Yes (Hospitalization, Other)
  Sender: FDA-Public Use
  Company Number: US-PFIZER INC-2016571397

PATIENT
  Age: 53 Year
  Sex: Male
  Weight: 104.31 kg

DRUGS (5)
  1. XANAX [Concomitant]
     Active Substance: ALPRAZOLAM
     Dosage: UNK
     Dates: start: 2012
  2. SUTENT [Suspect]
     Active Substance: SUNITINIB MALATE
     Indication: METASTATIC RENAL CELL CARCINOMA
     Dosage: 50 MG, CYCLIC [28 DAYS ON/14 DAYS OFF]
     Dates: start: 201209, end: 20170312
  3. SUTENT [Suspect]
     Active Substance: SUNITINIB MALATE
     Dosage: 50 MG, CYCLIC [28 DAY ON, 14 OFF]
     Dates: start: 2012, end: 201702
  4. LEVOTHYROXINE. [Concomitant]
     Active Substance: LEVOTHYROXINE
     Dosage: UNK
     Dates: start: 2016
  5. FLOMAX [Concomitant]
     Active Substance: TAMSULOSIN HYDROCHLORIDE
     Dosage: UNK
     Dates: start: 2010

REACTIONS (36)
  - Muscular weakness [Recovered/Resolved]
  - Diarrhoea [Recovered/Resolved]
  - Dyspnoea [Recovered/Resolved]
  - Fatigue [Not Recovered/Not Resolved]
  - Tendonitis [Unknown]
  - Dry skin [Not Recovered/Not Resolved]
  - Nasal congestion [Unknown]
  - Respiratory tract congestion [Unknown]
  - Neoplasm progression [Unknown]
  - Blood urine present [Recovered/Resolved]
  - Tremor [Unknown]
  - Cough [Unknown]
  - Gout [Recovered/Resolved]
  - Feeling abnormal [Unknown]
  - Constipation [Not Recovered/Not Resolved]
  - Dysgeusia [Unknown]
  - Hyperhidrosis [Unknown]
  - Peripheral swelling [Not Recovered/Not Resolved]
  - Visual impairment [Not Recovered/Not Resolved]
  - Sinus disorder [Unknown]
  - Pruritus [Not Recovered/Not Resolved]
  - Joint swelling [Unknown]
  - Thyroid disorder [Not Recovered/Not Resolved]
  - Arthralgia [Recovering/Resolving]
  - Tendon pain [Unknown]
  - Blood uric acid increased [Recovered/Resolved]
  - Ageusia [Recovering/Resolving]
  - Pain [Unknown]
  - Gastrooesophageal reflux disease [Recovered/Resolved]
  - Dyspepsia [Unknown]
  - Viral upper respiratory tract infection [Unknown]
  - Hypersensitivity [Unknown]
  - Lower respiratory tract infection [Unknown]
  - Memory impairment [Not Recovered/Not Resolved]
  - Joint swelling [Recovered/Resolved]
  - Arthralgia [Recovered/Resolved]

NARRATIVE: CASE EVENT DATE: 2012
